FAERS Safety Report 5155292-0 (Version None)
Quarter: 2006Q4

REPORT INFORMATION
  Report Type: 
  Country: None (occurrence: None)
  Receive Date: 20061121
  Receipt Date: 20061115
  Transmission Date: 20070319
  Serious: Yes (Hospitalization)
  Sender: FDA-Public Use
  Company Number: GB-AVENTIS-200621756GDDC

PATIENT
  Age: 53 Year
  Sex: Female

DRUGS (1)
  1. DDAVP [Suspect]
     Indication: VON WILLEBRAND'S DISEASE
     Route: 042
     Dates: start: 20061030, end: 20061031

REACTIONS (4)
  - DRUG ADMINISTRATION ERROR [None]
  - HYPONATRAEMIA [None]
  - INFUSION SITE EXTRAVASATION [None]
  - OEDEMA PERIPHERAL [None]
